FAERS Safety Report 8566351-4 (Version None)
Quarter: 2012Q3

REPORT INFORMATION
  Report Type: 
  Country: None (occurrence: None)
  Receive Date: 20120803
  Receipt Date: 20111022
  Transmission Date: 20120928
  Serious: No
  Sender: FDA-Public Use
  Company Number: US-ABBOTT-11P-163-0868800-00

PATIENT
  Sex: Female
  Weight: 99.88 kg

DRUGS (5)
  1. HYDROXYCHLOROTHIAZIDE [Concomitant]
     Indication: HYPERTENSION
  2. ASPIRIN [Concomitant]
     Indication: PRODUCT USED FOR UNKNOWN INDICATION
  3. AMLODIPINE [Concomitant]
     Indication: HYPERTENSION
  4. NIASPAN [Suspect]
     Indication: BLOOD CHOLESTEROL
     Dates: start: 20110801, end: 20110901
  5. LISINOPRIL [Concomitant]
     Indication: HYPERTENSION

REACTIONS (2)
  - FLUSHING [None]
  - NAUSEA [None]
